FAERS Safety Report 5472180-0 (Version None)
Quarter: 2007Q3

REPORT INFORMATION
  Report Type: 
  Country: None (occurrence: None)
  Receive Date: 20070925
  Receipt Date: 20070911
  Transmission Date: 20080115
  Serious: Yes (Hospitalization)
  Sender: FDA-Public Use
  Company Number: 304 / E2B_00010045

PATIENT
  Age: 41 Year
  Sex: Female

DRUGS (6)
  1. METFORMIN HCL [Suspect]
     Indication: TYPE 2 DIABETES MELLITUS
     Dosage: STUDY DRUG WAS INTERRUPTED FROM 28-JAN--07 TO 30-JAN-07. (8 MG)
     Dates: start: 20051129, end: 20070127
  2. METFORMIN HCL [Suspect]
     Indication: TYPE 2 DIABETES MELLITUS
     Dosage: STUDY DRUG WAS INTERRUPTED FROM 28-JAN--07 TO 30-JAN-07. (8 MG)
     Dates: start: 20070131
  3. BLINDED STUDY MEDICATION [Suspect]
     Dosage: STUDY DRUG WAS INTERRUPTED FROM 28-JAN--07 TO 30-JAN-07.
     Dates: start: 20040101, end: 20070127
  4. BLINDED STUDY MEDICATION [Suspect]
     Dosage: STUDY DRUG WAS INTERRUPTED FROM 28-JAN--07 TO 30-JAN-07.
     Dates: start: 20070131
  5. ATACAND [Concomitant]
  6. PHENERGAN HCL [Concomitant]

REACTIONS (2)
  - ANAEMIA [None]
  - PELVIC MASS [None]
